FAERS Safety Report 7946366-7 (Version None)
Quarter: 2011Q4

REPORT INFORMATION
  Report Type: 
  Country: None (occurrence: None)
  Receive Date: 20111129
  Receipt Date: 20111124
  Transmission Date: 20120403
  Serious: Yes (Disabling, Other)
  Sender: FDA-Public Use
  Company Number: ES-MERCK-1110ESP00061

PATIENT
  Age: 29 Year
  Sex: Male
  Weight: 81 kg

DRUGS (2)
  1. PROPECIA [Suspect]
     Indication: ALOPECIA
     Route: 048
     Dates: start: 20000101, end: 20060101
  2. PROSCAR [Suspect]
     Indication: ALOPECIA
     Route: 048
     Dates: start: 20060101, end: 20060101

REACTIONS (10)
  - GROIN PAIN [None]
  - INTENTIONAL DRUG MISUSE [None]
  - WRONG TECHNIQUE IN DRUG USAGE PROCESS [None]
  - TESTICULAR PAIN [None]
  - TENDON RUPTURE [None]
  - TENDON DISORDER [None]
  - ABDOMINAL PAIN [None]
  - EJACULATION DISORDER [None]
  - TENDON PAIN [None]
  - LIGAMENT SPRAIN [None]
